FAERS Safety Report 6788723-0 (Version None)
Quarter: 2010Q2

REPORT INFORMATION
  Report Type: 
  Country: None (occurrence: None)
  Receive Date: 20100623
  Receipt Date: 20080519
  Transmission Date: 20101027
  Serious: Yes (Other)
  Sender: FDA-Public Use
  Company Number: US-PFIZER INC-2008033058

PATIENT
  Sex: Female
  Weight: 66.9 kg

DRUGS (15)
  1. SUTENT [Suspect]
     Indication: METASTATIC RENAL CELL CARCINOMA
     Route: 048
     Dates: start: 20080224, end: 20080308
  2. LEXAPRO [Concomitant]
     Dosage: Q DAY
  3. ATACAND [Concomitant]
     Dosage: Q DAY
  4. ZOCOR [Concomitant]
     Dosage: Q DAY
  5. METFORMIN HCL [Concomitant]
     Dosage: BID
  6. AMARYL [Concomitant]
     Dosage: Q DAY
  7. NEXIUM [Concomitant]
     Dosage: Q DAY
  8. MULTI-VITAMINS [Concomitant]
     Dosage: Q DAY
  9. CALCIUM CARBONATE [Concomitant]
     Dosage: Q DAY
  10. ACYCLOVIR [Concomitant]
  11. CEFTRIAXONE [Concomitant]
  12. ENALAPRIL MALEATE [Concomitant]
  13. INSULIN [Concomitant]
  14. LORAZEPAM [Concomitant]
  15. METOPROLOL TARTRATE [Concomitant]

REACTIONS (4)
  - LIVER FUNCTION TEST ABNORMAL [None]
  - PNEUMONIA [None]
  - REVERSIBLE POSTERIOR LEUKOENCEPHALOPATHY SYNDROME [None]
  - THROMBOCYTOPENIA [None]
